FAERS Safety Report 4411361-1 (Version None)
Quarter: 2004Q3

REPORT INFORMATION
  Report Type: 
  Country: None (occurrence: None)
  Receive Date: 20040727
  Receipt Date: 20040716
  Transmission Date: 20050211
  Serious: Yes (Other)
  Sender: FDA-Public Use
  Company Number: RENA-11100

PATIENT
  Age: 55 Year
  Sex: Male

DRUGS (2)
  1. RENAGEL [Suspect]
     Indication: HYPERPHOSPHATAEMIA
     Dosage: 0.75 G TIB PO
     Route: 048
     Dates: start: 20040519, end: 20040625
  2. RENAGEL [Suspect]
     Indication: HYPERPHOSPHATAEMIA
     Dosage: 1.5 G TID PO
     Route: 048
     Dates: start: 20030716, end: 20040405

REACTIONS (1)
  - BLOOD CREATINE PHOSPHOKINASE INCREASED [None]
